FAERS Safety Report 8074220-1 (Version None)
Quarter: 2012Q1

REPORT INFORMATION
  Report Type: 
  Country: None (occurrence: None)
  Receive Date: 20120119
  Receipt Date: 20120111
  Transmission Date: 20120608
  Serious: Yes (Hospitalization, Other)
  Sender: FDA-Public Use
  Company Number: 2012SP002055

PATIENT
  Age: 60 Year
  Sex: Female
  Weight: 50 kg

DRUGS (11)
  1. VOLTAREN [Concomitant]
  2. ALFAROL [Concomitant]
  3. RESTAMIN [Concomitant]
  4. LOCHOLEST [Concomitant]
  5. REBETOL [Suspect]
     Indication: HEPATITIS C
     Dosage: 600 MG;QD;PO
     Route: 048
     Dates: start: 20110126, end: 20110614
  6. INTERFERON [Suspect]
     Indication: HEPATITIS C
     Dosage: 6 MIU;QD;INDRP 3 MIU;QD;INDRP 6 MIU;QD;INDRP 6 MIU;TIW;INDRP 6 MIU;TIW;INDRP
     Route: 041
     Dates: start: 20110206, end: 20110209
  7. INTERFERON [Suspect]
     Indication: HEPATITIS C
     Dosage: 6 MIU;QD;INDRP 3 MIU;QD;INDRP 6 MIU;QD;INDRP 6 MIU;TIW;INDRP 6 MIU;TIW;INDRP
     Route: 041
     Dates: start: 20110225, end: 20110301
  8. INTERFERON [Suspect]
     Indication: HEPATITIS C
     Dosage: 6 MIU;QD;INDRP 3 MIU;QD;INDRP 6 MIU;QD;INDRP 6 MIU;TIW;INDRP 6 MIU;TIW;INDRP
     Route: 041
     Dates: start: 20110126, end: 20110205
  9. INTERFERON [Suspect]
     Indication: HEPATITIS C
     Dosage: 6 MIU;QD;INDRP 3 MIU;QD;INDRP 6 MIU;QD;INDRP 6 MIU;TIW;INDRP 6 MIU;TIW;INDRP
     Route: 041
     Dates: start: 20110210, end: 20110222
  10. INTERFERON [Suspect]
     Indication: HEPATITIS C
     Dosage: 6 MIU;QD;INDRP 3 MIU;QD;INDRP 6 MIU;QD;INDRP 6 MIU;TIW;INDRP 6 MIU;TIW;INDRP
     Route: 041
     Dates: start: 20110309, end: 20110614
  11. ZOLPIDEM [Concomitant]

REACTIONS (5)
  - LARGE INTESTINAL HAEMORRHAGE [None]
  - COLITIS ISCHAEMIC [None]
  - INSOMNIA [None]
  - DEPRESSION [None]
  - PRURITUS GENERALISED [None]
